FAERS Safety Report 23899083 (Version 4)
Quarter: 2025Q1

REPORT INFORMATION
  Report Type: Spontaneous
  Country: US (occurrence: US)
  Receive Date: 20240526
  Receipt Date: 20250217
  Transmission Date: 20250409
  Serious: No
  Sender: ELI LILLY AND COMPANY
  Company Number: US-ELI_LILLY_AND_COMPANY-US202405013931

PATIENT
  Age: 64 Year
  Sex: Female

DRUGS (3)
  1. HUMALOG [Suspect]
     Active Substance: INSULIN LISPRO
     Indication: Product used for unknown indication
     Route: 065
     Dates: start: 20230901
  2. HUMALOG [Suspect]
     Active Substance: INSULIN LISPRO
     Route: 065
  3. TRESIBA [Concomitant]
     Active Substance: INSULIN DEGLUDEC
     Indication: Product used for unknown indication

REACTIONS (11)
  - Cataract [Unknown]
  - Crepitations [Unknown]
  - Neuropathy peripheral [Unknown]
  - Road traffic accident [Unknown]
  - Injury [Unknown]
  - Musculoskeletal stiffness [Unknown]
  - Wrist fracture [Unknown]
  - Abdominal pain upper [Unknown]
  - Pain [Unknown]
  - Fracture [Unknown]
  - Injection site pain [Unknown]

NARRATIVE: CASE EVENT DATE: 20230901
